FAERS Safety Report 12898865 (Version 10)
Quarter: 2017Q2

REPORT INFORMATION
  Report Type: Spontaneous
  Country: US (occurrence: US)
  Receive Date: 20161101
  Receipt Date: 20170630
  Transmission Date: 20170830
  Serious: Yes (Death, Other)
  Sender: FDA-Public Use
  Company Number: PHEH2016US028234

PATIENT
  Age: 73 Year
  Sex: Male

DRUGS (7)
  1. AFINITOR [Suspect]
     Active Substance: EVEROLIMUS
     Indication: RENAL CELL CARCINOMA
     Route: 048
  2. LENVATINIB [Suspect]
     Active Substance: LENVATINIB
     Dosage: 14 MG, QD
     Route: 048
     Dates: start: 20161205, end: 20161219
  3. LENVATINIB [Suspect]
     Active Substance: LENVATINIB
     Dosage: 10 MG, QD
     Route: 048
     Dates: start: 20170103
  4. LENVATINIB [Suspect]
     Active Substance: LENVATINIB
     Dosage: 10 MG, QD
     Route: 048
     Dates: start: 20161013
  5. AFINITOR [Suspect]
     Active Substance: EVEROLIMUS
     Indication: RENAL CANCER
  6. LENVATINIB [Suspect]
     Active Substance: LENVATINIB
     Indication: RENAL CELL CARCINOMA
     Dosage: 10 MG, QD
     Route: 048
     Dates: start: 20160912
  7. LENVATINIB [Suspect]
     Active Substance: LENVATINIB
     Dosage: 18 MG, QD
     Route: 048
     Dates: start: 20161112, end: 20161129

REACTIONS (12)
  - Fatigue [Unknown]
  - Death [Fatal]
  - Colitis [Recovered/Resolved]
  - Diarrhoea [Unknown]
  - Stress [Unknown]
  - Renal cell carcinoma [Unknown]
  - Myalgia [Not Recovered/Not Resolved]
  - Inappropriate schedule of drug administration [Unknown]
  - Pain in extremity [Unknown]
  - Constipation [Unknown]
  - Malignant neoplasm progression [Unknown]
  - Arthralgia [Not Recovered/Not Resolved]

NARRATIVE: CASE EVENT DATE: 20170612
